FAERS Safety Report 12535701 (Version 1)
Quarter: 2016Q3

REPORT INFORMATION
  Report Type: Spontaneous
  Country: US (occurrence: None)
  Receive Date: 20160706
  Receipt Date: 20160706
  Transmission Date: 20161109
  Serious: Yes (Hospitalization)
  Sender: FDA-Public Use
  Company Number: None

PATIENT
  Age: 79 Year
  Sex: Male
  Weight: 91 kg

DRUGS (2)
  1. ETOPOSIDE. [Suspect]
     Active Substance: ETOPOSIDE
     Route: 042
     Dates: start: 20160615, end: 20160615
  2. CARBOPLATIN. [Suspect]
     Active Substance: CARBOPLATIN
     Route: 042
     Dates: start: 20160615, end: 20160615

REACTIONS (7)
  - Nausea [None]
  - Diarrhoea [None]
  - Dizziness [None]
  - Vomiting [None]
  - Paraesthesia [None]
  - Hypotension [None]
  - Pancytopenia [None]

NARRATIVE: CASE EVENT DATE: 20160624
